FAERS Safety Report 15128722 (Version 1)
Quarter: 2018Q3

REPORT INFORMATION
  Report Type: Spontaneous
  Country: AU (occurrence: AU)
  Receive Date: 20180711
  Receipt Date: 20180711
  Transmission Date: 20181010
  Serious: Yes (Hospitalization)
  Sender: FDA-Public Use
  Company Number: AU-009507513-1807AUS001927

PATIENT
  Sex: Female

DRUGS (8)
  1. VALPROATE SODIUM. [Suspect]
     Active Substance: VALPROATE SODIUM
     Dosage: UNK
     Route: 065
  2. LITHIUM. [Suspect]
     Active Substance: LITHIUM
     Dosage: UNK
     Route: 065
  3. DIAZEPAM. [Suspect]
     Active Substance: DIAZEPAM
     Dosage: 5 MG, QD (ALSO REPORTED AS UNSPECIFIED FREQUENCY)
     Route: 065
  4. HALDOL DECANOATE [Suspect]
     Active Substance: HALOPERIDOL DECANOATE
     Indication: SCHIZOAFFECTIVE DISORDER
     Dosage: UNK
  5. MIRTAZAPINE GA [Suspect]
     Active Substance: MIRTAZAPINE
     Dosage: 45 MG, QD (ALSO REPORTED AS UNSPECIFIED FREQUENCY)
  6. OLANZAPINE. [Suspect]
     Active Substance: OLANZAPINE
     Dosage: 20 MG, QD (ALSO REPORTED AS 10 MG TWICE A DAY)
     Route: 065
  7. RISPERIDONE. [Suspect]
     Active Substance: RISPERIDONE
     Indication: SCHIZOAFFECTIVE DISORDER
     Dosage: UNK
     Route: 065
  8. ARIPIPRAZOLE. [Suspect]
     Active Substance: ARIPIPRAZOLE
     Dosage: 400 MG, MONTHLY
     Route: 065

REACTIONS (4)
  - Drug ineffective [Unknown]
  - Hallucination, auditory [Unknown]
  - Psychotic symptom [Not Recovered/Not Resolved]
  - Affective disorder [Not Recovered/Not Resolved]
